FAERS Safety Report 4894974-2 (Version None)
Quarter: 2006Q1

REPORT INFORMATION
  Report Type: 
  Country: None (occurrence: None)
  Receive Date: 20060130
  Receipt Date: 20050614
  Transmission Date: 20060701
  Serious: No
  Sender: FDA-Public Use
  Company Number: US-BRISTOL-MYERS SQUIBB COMPANY-13002985

PATIENT
  Age: 94 Year
  Sex: Female
  Weight: 68 kg

DRUGS (15)
  1. GLUCOPHAGE [Suspect]
     Indication: DIABETES MELLITUS
  2. ANTIVERT [Concomitant]
  3. ZOCOR [Concomitant]
  4. FOSAMAX [Concomitant]
  5. AVANDIA [Concomitant]
  6. DIOVAN [Concomitant]
  7. FUROSEMIDE [Concomitant]
  8. POTASSIUM [Concomitant]
  9. FOLGARD [Concomitant]
  10. COLACE [Concomitant]
  11. ASPIRIN [Concomitant]
  12. GAS-X [Concomitant]
  13. PERCOCET [Concomitant]
  14. IRON [Concomitant]
  15. BEANO [Concomitant]

REACTIONS (1)
  - HAEMOGLOBIN DECREASED [None]
